FAERS Safety Report 12660837 (Version 4)
Quarter: 2017Q1

REPORT INFORMATION
  Report Type: Spontaneous
  Country: US (occurrence: US)
  Receive Date: 20160817
  Receipt Date: 20170216
  Transmission Date: 20170428
  Serious: No
  Sender: FDA-Public Use
  Company Number: US-RELYPSA-RLY2016001392

PATIENT
  Sex: Female

DRUGS (14)
  1. MAGNESIUM OXIDE. [Concomitant]
     Active Substance: MAGNESIUM OXIDE
  2. AMLODIPINE BESYLATE. [Concomitant]
     Active Substance: AMLODIPINE BESYLATE
  3. OMEPRAZOLE. [Concomitant]
     Active Substance: OMEPRAZOLE
  4. CELEBREX [Concomitant]
     Active Substance: CELECOXIB
  5. TRILIPIX [Concomitant]
     Active Substance: FENOFIBRIC ACID
  6. FOSAMAX [Concomitant]
     Active Substance: ALENDRONATE SODIUM
  7. VELTASSA [Suspect]
     Active Substance: PATIROMER
     Indication: HYPERKALAEMIA
     Dosage: 8.4 G, QD
     Route: 048
     Dates: start: 20160310
  8. PRIMIDONE. [Concomitant]
     Active Substance: PRIMIDONE
  9. LORATADINE. [Concomitant]
     Active Substance: LORATADINE
  10. VESICARE [Concomitant]
     Active Substance: SOLIFENACIN SUCCINATE
  11. VITAMIN B12 [Concomitant]
     Active Substance: CYANOCOBALAMIN
  12. GLIMEPIRIDE. [Concomitant]
     Active Substance: GLIMEPIRIDE
  13. VITAMIN D                          /00107901/ [Concomitant]
     Active Substance: ERGOCALCIFEROL
  14. LASIX [Concomitant]
     Active Substance: FUROSEMIDE

REACTIONS (2)
  - Joint swelling [Not Recovered/Not Resolved]
  - Rash [Recovered/Resolved]
